FAERS Safety Report 11175272 (Version 1)
Quarter: 2015Q2

REPORT INFORMATION
  Report Type: Spontaneous
  Country: US (occurrence: US)
  Receive Date: 20150609
  Receipt Date: 20150609
  Transmission Date: 20150821
  Serious: No
  Sender: FDA-Public Use
  Company Number: US-PFIZER INC-2015189975

PATIENT
  Age: 57 Year
  Sex: Female
  Weight: 79 kg

DRUGS (7)
  1. LYRICA [Suspect]
     Active Substance: PREGABALIN
     Indication: TOOTHACHE
  2. LYRICA [Suspect]
     Active Substance: PREGABALIN
     Indication: NEURALGIA
  3. LYRICA [Suspect]
     Active Substance: PREGABALIN
     Indication: DIABETIC NEUROPATHY
  4. LYRICA [Suspect]
     Active Substance: PREGABALIN
     Indication: NERVE INJURY
     Dosage: 75 MG, 1X/DAY (75MG ONE CAPSULE ONCE A DAY AT BEDTIME BY MOUTH)
     Route: 048
     Dates: start: 201010
  5. LYRICA [Suspect]
     Active Substance: PREGABALIN
     Indication: BONE PAIN
  6. LYRICA [Suspect]
     Active Substance: PREGABALIN
     Indication: PAIN
  7. LYRICA [Suspect]
     Active Substance: PREGABALIN
     Indication: BREAKTHROUGH PAIN

REACTIONS (1)
  - Drug ineffective for unapproved indication [Unknown]
